FAERS Safety Report 16767137 (Version 1)
Quarter: 2019Q4

REPORT INFORMATION
  Report Type: Spontaneous
  Country: US (occurrence: US)
  Receive Date: 20190902
  Receipt Date: 20190902
  Transmission Date: 20200122
  Serious: No
  Sender: FDA-Public Use
  Company Number: None

PATIENT
  Age: 52 Year
  Sex: Male
  Weight: 99 kg

DRUGS (1)
  1. COLGATE TOTAL SF ADVANCED DEEP CLEAN [Suspect]
     Active Substance: STANNOUS FLUORIDE

REACTIONS (2)
  - Oral discomfort [None]
  - Oral mucosal blistering [None]

NARRATIVE: CASE EVENT DATE: 20190813
